FAERS Safety Report 6117436-3 (Version None)
Quarter: 2009Q1

REPORT INFORMATION
  Report Type: 
  Country: None (occurrence: None)
  Receive Date: 20090314
  Receipt Date: 20090115
  Transmission Date: 20090719
  Serious: No
  Sender: FDA-Public Use
  Company Number: US-ABBOTT-09P-163-0498450-00

PATIENT
  Sex: Female
  Weight: 76.272 kg

DRUGS (1)
  1. HUMIRA [Suspect]
     Indication: COLITIS ULCERATIVE
     Dosage: DAY 15
     Route: 058
     Dates: start: 20081231

REACTIONS (2)
  - OROPHARYNGEAL PAIN [None]
  - SINUSITIS [None]
